FAERS Safety Report 11009213 (Version 5)
Quarter: 2015Q2

REPORT INFORMATION
  Report Type: Spontaneous
  Country: US (occurrence: US)
  Receive Date: 20150410
  Receipt Date: 20150609
  Transmission Date: 20150821
  Serious: Yes (Death)
  Sender: FDA-Public Use
  Company Number: US-PFIZER INC-2015120529

PATIENT
  Age: 51 Year
  Sex: Female
  Weight: 45 kg

DRUGS (6)
  1. POTASSIUM [Concomitant]
     Active Substance: POTASSIUM
  2. SUTENT [Suspect]
     Active Substance: SUNITINIB MALATE
     Dosage: A HALF A ^TABLET^ FOR 3DAYS
  3. CESIUM [Concomitant]
  4. SUTENT [Suspect]
     Active Substance: SUNITINIB MALATE
     Dosage: 50 MG, 28 DAYS ON/14 DAYS OFF
     Route: 048
     Dates: start: 20150406, end: 20150526
  5. SUTENT [Suspect]
     Active Substance: SUNITINIB MALATE
     Indication: RENAL CANCER STAGE IV
     Dosage: 50 MG, DAILY (28 DAYS ON /14DAYS OFF)
     Route: 048
     Dates: start: 20150331, end: 20150402
  6. BENADRYL [Concomitant]
     Active Substance: DIPHENHYDRAMINE HYDROCHLORIDE
     Dosage: UNK

REACTIONS (7)
  - Nausea [Recovering/Resolving]
  - Death [Fatal]
  - Abdominal discomfort [Unknown]
  - Dysphagia [Unknown]
  - Rash generalised [Recovered/Resolved]
  - Fatigue [Not Recovered/Not Resolved]
  - Stomatitis [Recovering/Resolving]
